FAERS Safety Report 5211371-0 (Version None)
Quarter: 2007Q1

REPORT INFORMATION
  Report Type: 
  Country: None (occurrence: None)
  Receive Date: 20070112
  Receipt Date: 20070109
  Transmission Date: 20070707
  Serious: Yes (Hospitalization)
  Sender: FDA-Public Use
  Company Number: 2006SP003354

PATIENT
  Age: 71 Year
  Sex: Male
  Weight: 87.1 kg

DRUGS (5)
  1. XOPENEX [Suspect]
     Indication: DYSPNOEA
     Dosage: PRN;INHALATION
     Route: 055
  2. COREG [Concomitant]
  3. ASPIRIN [Concomitant]
  4. LASIX [Concomitant]
  5. DOXAZOSIN MESYLATE [Concomitant]

REACTIONS (8)
  - AORTIC ARTERIOSCLEROSIS [None]
  - BLOOD PRESSURE INCREASED [None]
  - CHRONIC OBSTRUCTIVE PULMONARY DISEASE [None]
  - DRUG INEFFECTIVE [None]
  - FLUID OVERLOAD [None]
  - THYROID DISORDER [None]
  - VENTRICULAR DYSFUNCTION [None]
  - VENTRICULAR HYPERTROPHY [None]
